FAERS Safety Report 19770079 (Version 1)
Quarter: 2021Q3

REPORT INFORMATION
  Report Type: Spontaneous
  Country: US (occurrence: US)
  Receive Date: 20210827
  Receipt Date: 20210827
  Transmission Date: 20211014
  Serious: Yes (Hospitalization)
  Sender: FDA-Public Use
  Company Number: None

PATIENT
  Age: 74 Year
  Sex: Male

DRUGS (2)
  1. TACROLIMUS (ACCORD) 5MG ACCORD HEALTHCARE [Suspect]
     Active Substance: TACROLIMUS
     Indication: LUNG TRANSPLANT
     Route: 048
     Dates: start: 202108
  2. TACROLIMUS (ACCORD) 0.5 MG ACCORD HEALTHCARE [Suspect]
     Active Substance: TACROLIMUS
     Indication: LUNG TRANSPLANT
     Route: 048
     Dates: start: 202108

REACTIONS (1)
  - Drug interaction [None]

NARRATIVE: CASE EVENT DATE: 20210819
